FAERS Safety Report 8359073-6 (Version None)
Quarter: 2012Q2

REPORT INFORMATION
  Report Type: 
  Country: None (occurrence: None)
  Receive Date: 20120515
  Receipt Date: 20120504
  Transmission Date: 20120825
  Serious: Yes (Hospitalization)
  Sender: FDA-Public Use
  Company Number: IT-BRISTOL-MYERS SQUIBB COMPANY-16560468

PATIENT
  Age: 52 Year
  Sex: Female
  Weight: 82 kg

DRUGS (8)
  1. LEUCOVORIN CALCIUM [Suspect]
     Indication: COLORECTAL CANCER
     Dosage: MOST RECENT DOSE ON 3APR2012
     Dates: start: 20120403
  2. DEXAMETHASONE SODIUM PHOSPHATE [Concomitant]
     Indication: ANTIEMETIC SUPPORTIVE CARE
     Dosage: 03-03APR12 04-05APR12,ROUTE: ORAL
     Route: 042
     Dates: start: 20120403, end: 20120405
  3. IRINOTECAN HCL [Suspect]
     Indication: COLORECTAL CANCER
     Dosage: MOST RECENT DOSE ON 3APR2012
     Dates: start: 20120403
  4. OXALIPLATIN [Suspect]
     Indication: COLORECTAL CANCER
     Dosage: MOST RECENT DOSE ON 3APR2012
     Dates: start: 20120403
  5. ZOFRAN [Concomitant]
     Indication: ANTIEMETIC SUPPORTIVE CARE
     Dosage: 03-03APR12 04-05APR12,ROUTE:ORAL
     Route: 042
     Dates: start: 20120403, end: 20120405
  6. TRIMETON [Concomitant]
     Indication: ANTIALLERGIC THERAPY
     Route: 042
     Dates: start: 20120403, end: 20120403
  7. FLUOROURACIL [Suspect]
     Indication: COLORECTAL CANCER
     Dosage: MOST RECENT DOSE ON 3APR2012
     Dates: start: 20120403
  8. CETUXIMAB [Suspect]
     Indication: COLORECTAL CANCER
     Dosage: MOST RECENT DOSE ON 3APR2012
     Dates: start: 20120403

REACTIONS (2)
  - ANAEMIA [None]
  - SYNCOPE [None]
